FAERS Safety Report 9769944 (Version 2)
Quarter: 2013Q4

REPORT INFORMATION
  Report Type: Spontaneous
  Country: US (occurrence: US)
  Receive Date: 20131218
  Receipt Date: 20131218
  Transmission Date: 20140711
  Serious: No
  Sender: FDA-Public Use
  Company Number: US-VERTEX PHARMACEUTICALS INC-AE-2011-000835

PATIENT
  Age: 47 Year
  Sex: Female
  Weight: 80 kg

DRUGS (9)
  1. INCIVEK [Suspect]
     Indication: HEPATITIS C
     Route: 048
     Dates: start: 20110809
  2. PEGASYS [Concomitant]
     Indication: HEPATITIS C
     Route: 058
     Dates: start: 20110808
  3. COPEGUS [Concomitant]
     Indication: HEPATITIS C
     Route: 048
     Dates: start: 20110808
  4. VICOPROFEN [Concomitant]
     Indication: FIBROMYALGIA
     Route: 048
  5. NAPROSYN [Concomitant]
     Indication: MYALGIA
     Route: 048
  6. NAPROSYN [Concomitant]
     Indication: ARTHRALGIA
  7. ZOLOFT [Concomitant]
     Indication: DEPRESSION
     Route: 048
  8. KLONOPIN [Concomitant]
     Indication: ANXIETY
  9. LISINOPRIL [Concomitant]
     Indication: HYPERTENSION
     Route: 048
     Dates: start: 2010

REACTIONS (7)
  - Dizziness [Not Recovered/Not Resolved]
  - Arthralgia [Not Recovered/Not Resolved]
  - Myalgia [Not Recovered/Not Resolved]
  - Decreased appetite [Not Recovered/Not Resolved]
  - Proctalgia [Not Recovered/Not Resolved]
  - Diarrhoea [Not Recovered/Not Resolved]
  - Rash [Unknown]
